FAERS Safety Report 25450646 (Version 3)
Quarter: 2025Q3

REPORT INFORMATION
  Report Type: Report from Study
  Country: US (occurrence: US)
  Receive Date: 20250618
  Receipt Date: 20250703
  Transmission Date: 20251020
  Serious: Yes (Death, Hospitalization, Other)
  Sender: ABBVIE
  Company Number: US-ABBVIE-6332977

PATIENT
  Age: 84 Year
  Sex: Male
  Weight: 90.718 kg

DRUGS (1)
  1. SKYRIZI [Suspect]
     Active Substance: RISANKIZUMAB-RZAA
     Indication: Psoriasis
     Route: 058
     Dates: start: 20221219, end: 202502

REACTIONS (6)
  - Sepsis [Fatal]
  - Head injury [Unknown]
  - Fall [Unknown]
  - Asthenia [Unknown]
  - Diverticulitis [Fatal]
  - Muscle disorder [Unknown]

NARRATIVE: CASE EVENT DATE: 20250101
